FAERS Safety Report 12319014 (Version 1)
Quarter: 2016Q2

REPORT INFORMATION
  Report Type: Report from Study
  Country: US (occurrence: US)
  Receive Date: 20160429
  Receipt Date: 20160429
  Transmission Date: 20160815
  Serious: Yes (Death)
  Sender: FDA-Public Use
  Company Number: US-APOPHARMA-2016AP007990

PATIENT
  Age: 57 Year
  Sex: Female
  Weight: 47 kg

DRUGS (3)
  1. DEFERIPRONE [Suspect]
     Active Substance: DEFERIPRONE
     Indication: THALASSAEMIA
     Dosage: 21 MG/KG, TID
     Route: 048
     Dates: start: 20130813, end: 20160404
  2. DEFERIPRONE [Suspect]
     Active Substance: DEFERIPRONE
     Indication: SICKLE CELL ANAEMIA
  3. DEFERIPRONE [Suspect]
     Active Substance: DEFERIPRONE
     Indication: HAEMOCHROMATOSIS

REACTIONS (1)
  - Death [Fatal]

NARRATIVE: CASE EVENT DATE: 20160404
